FAERS Safety Report 5042019-6 (Version None)
Quarter: 2006Q2

REPORT INFORMATION
  Report Type: 
  Country: None (occurrence: None)
  Receive Date: 20060630
  Receipt Date: 20060619
  Transmission Date: 20061013
  Serious: Yes (Other)
  Sender: FDA-Public Use
  Company Number: 2006JP001852

PATIENT
  Age: 42 Year
  Sex: Male

DRUGS (8)
  1. TACROLIMUS INJECTION (TACROLIMUS) INJECTION [Suspect]
     Indication: HEART TRANSPLANT
     Dosage: IV NOS
     Route: 042
  2. METHYLPREDNISOLONE [Concomitant]
  3. PREDNISONE (PREDNISONE ACETATE) [Concomitant]
  4. AZATHIOPRINE [Concomitant]
  5. CYCLOSPORINE [Concomitant]
  6. METHYLPREDNISOLONE [Concomitant]
  7. SIROLIMUS (SIROLIMUS) [Concomitant]
  8. MYCOPHENOLATE MOFETIL [Concomitant]

REACTIONS (3)
  - KAPOSI'S SARCOMA [None]
  - LYMPHADENOPATHY [None]
  - RECURRENT CANCER [None]
